FAERS Safety Report 13613359 (Version 1)
Quarter: 2017Q2

REPORT INFORMATION
  Report Type: Report from Study
  Country: RU (occurrence: RU)
  Receive Date: 20170605
  Receipt Date: 20170605
  Transmission Date: 20170830
  Serious: Yes (Other)
  Sender: FDA-Public Use
  Company Number: RU-TEVA-774121ISR

PATIENT
  Age: 10 Year
  Sex: Male
  Weight: 75.5 kg

DRUGS (17)
  1. IFOSFAMIDE. [Suspect]
     Active Substance: IFOSFAMIDE
     Dosage: 3 CYCLE
  2. VINCRISTINE [Suspect]
     Active Substance: VINCRISTINE
     Dosage: 3 CYCLE
  3. VINCRISTINE [Suspect]
     Active Substance: VINCRISTINE
     Dosage: 4 CYCLE
  4. DOXORUBICIN [Suspect]
     Active Substance: DOXORUBICIN
     Dosage: 4 CYCLE
  5. VINCRISTINE [Suspect]
     Active Substance: VINCRISTINE
     Dosage: 2 CYCLE
  6. DOXORUBICIN [Suspect]
     Active Substance: DOXORUBICIN
     Dosage: 2 CYCLE
  7. ETOPOSIDE. [Suspect]
     Active Substance: ETOPOSIDE
     Dosage: 2 CYCLE
  8. DOXORUBICIN [Suspect]
     Active Substance: DOXORUBICIN
     Dosage: 1 CYCLE
  9. LONQUEX [Suspect]
     Active Substance: LIPEGFILGRASTIM
     Indication: NEUTROPENIA
     Dosage: 6 MILLIGRAM DAILY; LAST DOSE BEFORE AE: 11-FEB-2017
     Route: 058
     Dates: start: 20170120
  10. ETOPOSIDE. [Suspect]
     Active Substance: ETOPOSIDE
     Dosage: 3 CYCLE
  11. IFOSFAMIDE. [Suspect]
     Active Substance: IFOSFAMIDE
     Dosage: 2 CYCLE
  12. ETOPOSIDE. [Suspect]
     Active Substance: ETOPOSIDE
     Dosage: 4 CYCLE
  13. IFOSFAMIDE. [Suspect]
     Active Substance: IFOSFAMIDE
     Dosage: 4 CYCLE
  14. ETOPOSIDE. [Suspect]
     Active Substance: ETOPOSIDE
     Dosage: 1 CYCLE
  15. IFOSFAMIDE. [Suspect]
     Active Substance: IFOSFAMIDE
     Dosage: 1 CYCLE
  16. VINCRISTINE [Suspect]
     Active Substance: VINCRISTINE
     Dosage: 1 CYCLE
  17. DOXORUBICIN [Suspect]
     Active Substance: DOXORUBICIN
     Dosage: 3 CYCLE

REACTIONS (3)
  - Lymphopenia [Recovered/Resolved]
  - Anaemia [Recovered/Resolved]
  - Thrombocytopenia [Recovered/Resolved]

NARRATIVE: CASE EVENT DATE: 20170211
